FAERS Safety Report 11803192 (Version 1)
Quarter: 2015Q4

REPORT INFORMATION
  Report Type: Spontaneous
  Country: JP (occurrence: JP)
  Receive Date: 20151204
  Receipt Date: 20151204
  Transmission Date: 20160305
  Serious: Yes (Hospitalization, Other)
  Sender: FDA-Public Use
  Company Number: JP-PFIZER INC-2015300389

PATIENT
  Age: 61 Year
  Sex: Male

DRUGS (3)
  1. LEUCOVORIN. [Concomitant]
     Active Substance: LEUCOVORIN
     Indication: DETOXIFICATION
     Dosage: 15 MG EACH 6 HOURS DAILY
     Route: 042
     Dates: start: 20150820, end: 20150831
  2. METHOTREXATE SODIUM. [Suspect]
     Active Substance: METHOTREXATE SODIUM
     Indication: CENTRAL NERVOUS SYSTEM LYMPHOMA
     Dosage: 5800 MG, UNK
     Route: 042
     Dates: start: 20150819, end: 20150819
  3. LEUCOVORIN. [Concomitant]
     Active Substance: LEUCOVORIN
     Dosage: 15 MG EACH 6 HOURS DAILY
     Route: 042

REACTIONS (4)
  - Disease progression [Unknown]
  - Drug level increased [Recovering/Resolving]
  - Drug ineffective [Unknown]
  - Central nervous system lymphoma [Unknown]

NARRATIVE: CASE EVENT DATE: 2015
